FAERS Safety Report 7864925-7 (Version None)
Quarter: 2011Q4

REPORT INFORMATION
  Report Type: 
  Country: None (occurrence: None)
  Receive Date: 20111028
  Receipt Date: 20100920
  Transmission Date: 20120403
  Serious: No
  Sender: FDA-Public Use
  Company Number: US-GLAXOSMITHKLINE-A0882084A

PATIENT
  Age: 41 Year
  Sex: Female

DRUGS (3)
  1. ADVAIR DISKUS 100/50 [Suspect]
     Indication: ASTHMA
     Dosage: 1PUFF SINGLE DOSE
     Route: 055
     Dates: start: 20100917, end: 20100917
  2. COUGH SYRUP [Concomitant]
  3. ANTIBIOTIC [Concomitant]

REACTIONS (4)
  - DIZZINESS [None]
  - THROAT IRRITATION [None]
  - HEADACHE [None]
  - SENSATION OF FOREIGN BODY [None]
